FAERS Safety Report 24883198 (Version 1)
Quarter: 2025Q1

REPORT INFORMATION
  Report Type: Report from Study
  Country: US (occurrence: US)
  Receive Date: 20250124
  Receipt Date: 20250124
  Transmission Date: 20250409
  Serious: Yes (Other)
  Sender: ALEXION PHARMACEUTICALS
  Company Number: US-AstraZeneca-CH-00786380A

PATIENT

DRUGS (1)
  1. TEZEPELUMAB [Suspect]
     Active Substance: TEZEPELUMAB
     Route: 065

REACTIONS (11)
  - Wheezing [Unknown]
  - Oxygen saturation [Unknown]
  - Sinusitis [Unknown]
  - Asthma [Unknown]
  - Obstructive sleep apnoea syndrome [Unknown]
  - Cough [Unknown]
  - Hypercholesterolaemia [Unknown]
  - Lung disorder [Unknown]
  - Respiratory failure [Unknown]
  - Depression [Unknown]
  - Anxiety [Unknown]
